FAERS Safety Report 24670290 (Version 1)
Quarter: 2024Q4

REPORT INFORMATION
  Report Type: Report from Study
  Country: GB (occurrence: GB)
  Receive Date: 20241127
  Receipt Date: 20241127
  Transmission Date: 20250115
  Serious: Yes (Death)
  Sender: UCB
  Company Number: GB-UCBSA-2024061596

PATIENT
  Sex: Female

DRUGS (1)
  1. CERTOLIZUMAB PEGOL [Suspect]
     Active Substance: CERTOLIZUMAB PEGOL
     Indication: Psoriasis
     Dosage: UNK
     Route: 064

REACTIONS (2)
  - Hyperglycinaemia [Fatal]
  - Maternal exposure during pregnancy [Unknown]
